FAERS Safety Report 20203036 (Version 1)
Quarter: 2021Q4

REPORT INFORMATION
  Report Type: Spontaneous
  Country: DE (occurrence: DE)
  Receive Date: 20211218
  Receipt Date: 20211218
  Transmission Date: 20220303
  Serious: Yes (Hospitalization, Other)
  Sender: FDA-Public Use
  Company Number: DE-ADRED-05087-02

PATIENT
  Age: 75 Year
  Sex: Male

DRUGS (6)
  1. RISPERIDONE [Suspect]
     Active Substance: RISPERIDONE
     Indication: Product used for unknown indication
     Dosage: 1 MILLIGRAM (0.5-0-0.5-0)
     Route: 048
  2. TROMCARDIN DUO [Concomitant]
     Indication: Product used for unknown indication
     Dosage: UNK (1-0-1-0)
     Route: 048
  3. RAMIPRIL [Concomitant]
     Active Substance: RAMIPRIL
     Indication: Product used for unknown indication
     Dosage: 2.5 MILLIGRAM (1-0-0-0)
     Route: 048
  4. XARELTO [Concomitant]
     Active Substance: RIVAROXABAN
     Indication: Product used for unknown indication
     Dosage: 15 MILLIGRAM ( 0-0-1-0)
     Route: 048
  5. TORSEMIDE [Concomitant]
     Active Substance: TORSEMIDE
     Indication: Product used for unknown indication
     Dosage: 10 MILLIGRAM (1-0-0-0)
     Route: 048
  6. SIMVASTATIN [Concomitant]
     Active Substance: SIMVASTATIN
     Indication: Product used for unknown indication
     Dosage: 20 MILLIGRAM (0-0-1-0)
     Route: 048

REACTIONS (6)
  - Aspiration [Unknown]
  - Immobile [Unknown]
  - General physical health deterioration [Unknown]
  - Somnolence [Unknown]
  - Cough [Unknown]
  - Fatigue [Unknown]
